FAERS Safety Report 4339781-4 (Version None)
Quarter: 2004Q2

REPORT INFORMATION
  Report Type: 
  Country: None (occurrence: None)
  Receive Date: 20040414
  Receipt Date: 20040414
  Transmission Date: 20050107
  Serious: Yes (Hospitalization)
  Sender: FDA-Public Use
  Company Number: None

PATIENT
  Age: 74 Year
  Sex: Female
  Weight: 78.6 kg

DRUGS (2)
  1. DILTIAZEM [Suspect]
     Indication: ARRHYTHMIA
     Dosage: 5 ML/HR CONT INFUS IV
     Route: 041
     Dates: start: 20040309, end: 20040313
  2. DILTIAZEM [Suspect]
     Indication: ARRHYTHMIA
     Dosage: 30 MG Q 8 HOURS ORAL
     Route: 048
     Dates: start: 20040313, end: 20040319

REACTIONS (10)
  - ANXIETY [None]
  - CONFUSIONAL STATE [None]
  - DRUG INTOLERANCE [None]
  - DYSKINESIA [None]
  - HALLUCINATION [None]
  - INFECTION [None]
  - MEMORY IMPAIRMENT [None]
  - RESTLESSNESS [None]
  - TONGUE PARALYSIS [None]
  - TREMOR [None]
